FAERS Safety Report 9925279 (Version 1)
Quarter: 2014Q1

REPORT INFORMATION
  Report Type: Spontaneous
  Country: US (occurrence: None)
  Receive Date: 20140225
  Receipt Date: 20140225
  Transmission Date: 20141002
  Serious: Yes (Disabling)
  Sender: FDA-Public Use
  Company Number: None

PATIENT
  Age: 70 Year
  Sex: Female
  Weight: 66.23 kg

DRUGS (1)
  1. REGLAN [Suspect]
     Indication: ILEUS PARALYTIC
     Route: 048
     Dates: start: 20121018, end: 20130129

REACTIONS (7)
  - Dry mouth [None]
  - Muscular weakness [None]
  - Salivary hypersecretion [None]
  - Hypoaesthesia [None]
  - Tooth disorder [None]
  - Dysphagia [None]
  - Choking [None]
